FAERS Safety Report 12285219 (Version 2)
Quarter: 2016Q4

REPORT INFORMATION
  Report Type: Spontaneous
  Country: ES (occurrence: ES)
  Receive Date: 20160420
  Receipt Date: 20161006
  Transmission Date: 20170207
  Serious: Yes (Hospitalization, Other)
  Sender: FDA-Public Use
  Company Number: ES-AMGEN-ESPSP2016048610

PATIENT
  Sex: Female

DRUGS (1)
  1. PROLIA [Suspect]
     Active Substance: DENOSUMAB
     Indication: PRODUCT USED FOR UNKNOWN INDICATION
     Dosage: UNK
     Route: 065
     Dates: end: 201403

REACTIONS (14)
  - Arthralgia [Unknown]
  - Peripheral swelling [Unknown]
  - Hypotonia [Unknown]
  - Hypergammaglobulinaemia [Unknown]
  - Synovial cyst [Unknown]
  - Interstitial lung disease [Unknown]
  - Coagulopathy [Unknown]
  - Hepatic cirrhosis [Unknown]
  - Syncope [Unknown]
  - Contusion [Unknown]
  - Autoimmune hepatitis [Unknown]
  - Arthritis infective [Unknown]
  - Hepatic encephalopathy [Unknown]
  - Hyponatraemia [Unknown]

NARRATIVE: CASE EVENT DATE: 2014
